FAERS Safety Report 24309629 (Version 3)
Quarter: 2024Q4

REPORT INFORMATION
  Report Type: Spontaneous
  Country: RU (occurrence: RU)
  Receive Date: 20240912
  Receipt Date: 20241022
  Transmission Date: 20250115
  Serious: Yes (Death, Other)
  Sender: ABBVIE
  Company Number: RU-ABBVIE-5913723

PATIENT
  Age: 64 Year
  Sex: Male
  Weight: 84 kg

DRUGS (6)
  1. ZEMPLAR [Suspect]
     Active Substance: PARICALCITOL
     Indication: End stage renal disease
     Dosage: TIME INTERVAL: 0.33333333 WEEKS: FREQUENCY TEXT: 1 TIME PER 72 HOURS
     Route: 048
     Dates: start: 20240515, end: 20240801
  2. PALEXIA [Concomitant]
     Active Substance: TAPENTADOL HYDROCHLORIDE
     Indication: Pain
     Route: 048
     Dates: start: 20240622, end: 20240630
  3. CINACALCET [Concomitant]
     Active Substance: CINACALCET
     Indication: Chronic kidney disease
     Dates: start: 20230414
  4. LOSARTAN [Concomitant]
     Active Substance: LOSARTAN
     Indication: Hypertension
     Route: 048
  5. WARFARIN [Concomitant]
     Active Substance: WARFARIN
     Indication: Atrial fibrillation
     Route: 048
     Dates: start: 20230216
  6. ALLOPURINOL [Concomitant]
     Active Substance: ALLOPURINOL
     Indication: Gout
     Route: 048

REACTIONS (4)
  - Intervertebral discitis [Fatal]
  - Spinal pain [Unknown]
  - Chest pain [Recovering/Resolving]
  - Pain [Unknown]

NARRATIVE: CASE EVENT DATE: 20240515
